FAERS Safety Report 8537577-0 (Version None)
Quarter: 2012Q3

REPORT INFORMATION
  Report Type: 
  Country: None (occurrence: None)
  Receive Date: 20120712
  Receipt Date: 20120628
  Transmission Date: 20120928
  Serious: Yes (Other)
  Sender: FDA-Public Use
  Company Number: JP-2012-15695

PATIENT

DRUGS (9)
  1. DIART (AZOSEMIDE) TABLET [Concomitant]
  2. DOBUTAMINE (DOBUTAMINE HYDROCHLORIDE) INJECTION [Concomitant]
  3. SAMSCA [Suspect]
     Indication: CARDIAC FAILURE CONGESTIVE
     Dosage: 7.5 MILLIGRAM(S) QD, ORAL, 15 MG MILLIGRAM(S), QD, ORAL
     Route: 048
     Dates: start: 20120613, end: 20120622
  4. SAMSCA [Suspect]
     Indication: CARDIAC FAILURE CONGESTIVE
     Dosage: 7.5 MILLIGRAM(S) QD, ORAL, 15 MG MILLIGRAM(S), QD, ORAL
     Route: 048
     Dates: start: 20120606, end: 20120612
  5. FUROSEMIDE (FUROSEMIDE) TABLET [Concomitant]
  6. FUROSEMIDE (FUROSEMIDE) TABLET [Concomitant]
  7. HANP (CARPERITIDE) INJECTION [Concomitant]
  8. HANP (CARPERITIDE) INJECTION [Concomitant]
  9. FUROSEMIDE (FUROSEMIDE) TABLET [Concomitant]

REACTIONS (2)
  - SOMNOLENCE [None]
  - HYPERNATRAEMIA [None]
